FAERS Safety Report 21169151 (Version 1)
Quarter: 2022Q3

REPORT INFORMATION
  Report Type: Spontaneous
  Country: US (occurrence: US)
  Receive Date: 20220804
  Receipt Date: 20220804
  Transmission Date: 20221026
  Serious: No
  Sender: FDA-Public Use
  Company Number: US-ALKEM LABORATORIES LIMITED-US-ALKEM-2021-07994

PATIENT
  Age: 58 Year
  Sex: Male

DRUGS (1)
  1. LAMOTRIGINE [Suspect]
     Active Substance: LAMOTRIGINE
     Indication: Product used for unknown indication
     Dosage: UNK
     Route: 065

REACTIONS (7)
  - Drug level increased [Unknown]
  - Foreign body ingestion [Unknown]
  - Toxicity to various agents [Unknown]
  - Visual impairment [Unknown]
  - Dizziness [Unknown]
  - Ataxia [Unknown]
  - Dry mouth [Unknown]
